FAERS Safety Report 4598518-4 (Version None)
Quarter: 2005Q1

REPORT INFORMATION
  Report Type: 
  Country: None (occurrence: None)
  Receive Date: 20050304
  Receipt Date: 20050221
  Transmission Date: 20050727
  Serious: Yes (Hospitalization)
  Sender: FDA-Public Use
  Company Number: US-GLAXOSMITHKLINE-A0546664A

PATIENT
  Age: 82 Year
  Sex: Male
  Weight: 66 kg

DRUGS (7)
  1. CITRUCEL REGULAR SUSPENSION [Suspect]
     Indication: DIVERTICULITIS
     Route: 048
     Dates: start: 20020101
  2. METHOTREXATE [Concomitant]
     Indication: RHEUMATOID ARTHRITIS
     Route: 048
  3. AZULFIDINE [Concomitant]
     Indication: RHEUMATOID ARTHRITIS
     Route: 048
  4. ATENOLOL [Concomitant]
     Route: 048
  5. ENALAPRIL MALEATE [Concomitant]
     Route: 048
  6. CALCIUM GLUCONATE [Concomitant]
     Indication: OSTEOPOROSIS
     Route: 048
  7. FOSAMAX [Concomitant]
     Indication: OSTEOPOROSIS
     Route: 048

REACTIONS (3)
  - COLON CANCER [None]
  - COLONIC POLYP [None]
  - RECTAL HAEMORRHAGE [None]
